FAERS Safety Report 13158222 (Version 1)
Quarter: 2017Q1

REPORT INFORMATION
  Report Type: Spontaneous
  Country: FR (occurrence: FR)
  Receive Date: 20170127
  Receipt Date: 20170127
  Transmission Date: 20170428
  Serious: Yes (Other)
  Sender: FDA-Public Use
  Company Number: FR-009507513-1406FRA005575

PATIENT
  Sex: Female
  Weight: 52 kg

DRUGS (1)
  1. IMPLANON [Suspect]
     Active Substance: ETONOGESTREL
     Indication: CONTRACEPTION
     Dosage: UNK
     Route: 059
     Dates: start: 20080812

REACTIONS (3)
  - Polyp [Recovered/Resolved]
  - Anaemia [Unknown]
  - Metrorrhagia [Unknown]

NARRATIVE: CASE EVENT DATE: 2010
